FAERS Safety Report 18120415 (Version 1)
Quarter: 2020Q3

REPORT INFORMATION
  Report Type: Spontaneous
  Country: US (occurrence: US)
  Receive Date: 20200806
  Receipt Date: 20200806
  Transmission Date: 20201103
  Serious: Yes (Other)
  Sender: FDA-Public Use
  Company Number: US-ABBVIE-19K-163-3189706-00

PATIENT
  Sex: Male
  Weight: 72.57 kg

DRUGS (1)
  1. DIVALPROEX SODIUM DR [Suspect]
     Active Substance: DIVALPROEX SODIUM
     Indication: SEIZURE
     Route: 065
     Dates: start: 1992

REACTIONS (3)
  - Seizure [Unknown]
  - Lip dry [Unknown]
  - Product closure removal difficult [Unknown]
